FAERS Safety Report 21258506 (Version 1)
Quarter: 2022Q3

REPORT INFORMATION
  Report Type: Spontaneous
  Country: None (occurrence: US)
  Receive Date: 20220826
  Receipt Date: 20220826
  Transmission Date: 20221026
  Serious: No
  Sender: FDA-Public Use
  Company Number: US-ITALFARMACO SPA-2132262

PATIENT
  Age: 16 Year
  Sex: Female

DRUGS (25)
  1. TIGLUTIK [Suspect]
     Active Substance: RILUZOLE
     Indication: Amyotrophic lateral sclerosis
     Dates: start: 20220419
  2. DOCUSATE [Concomitant]
     Active Substance: DOCUSATE
  3. CETIRIZINE [Concomitant]
     Active Substance: CETIRIZINE HYDROCHLORIDE
  4. PROBIOTIC COMPLEX [Concomitant]
  5. TUMS [Concomitant]
     Active Substance: CALCIUM CARBONATE
  6. VITAMINS [Concomitant]
     Active Substance: VITAMINS
  7. GUANFACINE [Concomitant]
     Active Substance: GUANFACINE
  8. CLONAZEPAM [Concomitant]
     Active Substance: CLONAZEPAM
  9. GABAPENTIN [Concomitant]
     Active Substance: GABAPENTIN
  10. LEVALBUTEROL [Concomitant]
     Active Substance: LEVALBUTEROL
  11. SODIUM CHLORIDE [Concomitant]
     Active Substance: SODIUM CHLORIDE
  12. FLONASE ALLERGY RELIEF [Concomitant]
     Active Substance: FLUTICASONE PROPIONATE
  13. PANTOPRAZOLE SODIUM [Concomitant]
     Active Substance: PANTOPRAZOLE SODIUM
  14. CLONIDINE [Concomitant]
     Active Substance: CLONIDINE
  15. SENNA LEAF [Concomitant]
     Active Substance: SENNA LEAF
  16. BENADRYL ALLERGY [Concomitant]
     Active Substance: DIPHENHYDRAMINE HYDROCHLORIDE
  17. ESTARYLLA [Concomitant]
     Active Substance: ETHINYL ESTRADIOL\NORGESTIMATE
  18. TYLENOL [Concomitant]
     Active Substance: ACETAMINOPHEN
  19. IBUPROFEN [Concomitant]
     Active Substance: IBUPROFEN
  20. ERYTHROMYCIN [Concomitant]
     Active Substance: ERYTHROMYCIN
  21. MIRALAX [Concomitant]
     Active Substance: POLYETHYLENE GLYCOL 3350
  22. MONTELUKAST [Concomitant]
     Active Substance: MONTELUKAST SODIUM
  23. MELATONIN [Concomitant]
     Active Substance: MELATONIN
  24. OXYCODONE. [Concomitant]
     Active Substance: OXYCODONE HYDROCHLORIDE
  25. TRAMADOL [Concomitant]
     Active Substance: TRAMADOL

REACTIONS (1)
  - Bradycardia [Unknown]

NARRATIVE: CASE EVENT DATE: 20220420
